FAERS Safety Report 4816291-9 (Version None)
Quarter: 2005Q4

REPORT INFORMATION
  Report Type: 
  Country: None (occurrence: None)
  Receive Date: 20051028
  Receipt Date: 20051019
  Transmission Date: 20060501
  Serious: No
  Sender: FDA-Public Use
  Company Number: 05H-153-0303140-00

PATIENT
  Age: 4 Day

DRUGS (2)
  1. EPINEPHRINE [Suspect]
     Dosage: 2  MG, INTRAVENOUS
     Route: 042
  2. PACKED RED BLOOD CELLS (RED BLOOD CELLS) [Concomitant]

REACTIONS (11)
  - CYANOSIS NEONATAL [None]
  - DRUG ADMINISTRATION ERROR [None]
  - HYPOKALAEMIA [None]
  - NEONATAL DISORDER [None]
  - NEONATAL TACHYCARDIA [None]
  - NEONATAL TACHYPNOEA [None]
  - OVERDOSE [None]
  - RENAL FAILURE ACUTE [None]
  - RENAL FAILURE NEONATAL [None]
  - RHABDOMYOLYSIS [None]
  - WRONG DRUG ADMINISTERED [None]
